FAERS Safety Report 25030138 (Version 3)
Quarter: 2025Q3

REPORT INFORMATION
  Report Type: Report from Study
  Country: US (occurrence: US)
  Receive Date: 20250303
  Receipt Date: 20250828
  Transmission Date: 20251021
  Serious: Yes (Hospitalization, Other)
  Sender: SANOFI AVENTIS
  Company Number: US-SA-2025SA038187

PATIENT
  Age: 74 Year
  Sex: Male

DRUGS (4)
  1. AGALSIDASE BETA [Suspect]
     Active Substance: AGALSIDASE BETA
     Indication: Fabry^s disease
     Dosage: 95 MG, QOW
     Route: 042
     Dates: start: 20120705
  2. AGALSIDASE BETA [Suspect]
     Active Substance: AGALSIDASE BETA
     Dosage: 80 MG, QOW
     Route: 042
  3. AGALSIDASE BETA [Suspect]
     Active Substance: AGALSIDASE BETA
     Dosage: 85 (UNITS NOT KNOWN), QOW
     Route: 042
  4. LISINOPRIL [Concomitant]
     Active Substance: LISINOPRIL
     Dosage: 5 MG, QD

REACTIONS (19)
  - COVID-19 [Unknown]
  - Atrial fibrillation [Unknown]
  - Syncope [Unknown]
  - Cerebrovascular accident [Recovering/Resolving]
  - Myocardial infarction [Recovering/Resolving]
  - Deafness [Recovering/Resolving]
  - Condition aggravated [Recovering/Resolving]
  - Cardiac pacemaker insertion [Recovering/Resolving]
  - Heart valve incompetence [Recovering/Resolving]
  - Gait disturbance [Unknown]
  - Weight decreased [Unknown]
  - Urinary tract infection [Recovering/Resolving]
  - Blood pressure fluctuation [Recovering/Resolving]
  - Disturbance in attention [Recovering/Resolving]
  - Cellulitis [Unknown]
  - Gait disturbance [Unknown]
  - Blood pressure increased [Recovering/Resolving]
  - Malaise [Recovering/Resolving]
  - Dyspnoea [Recovering/Resolving]

NARRATIVE: CASE EVENT DATE: 20250101
